FAERS Safety Report 13158729 (Version 3)
Quarter: 2017Q3

REPORT INFORMATION
  Report Type: Report from Study
  Country: US (occurrence: US)
  Receive Date: 20170127
  Receipt Date: 20170728
  Transmission Date: 20171127
  Serious: No
  Sender: FDA-Public Use
  Company Number: US-AMGEN-USASL2016169429

PATIENT
  Age: 83 Year
  Sex: Female
  Weight: 60.86 kg

DRUGS (4)
  1. REPATHA [Suspect]
     Active Substance: EVOLOCUMAB
     Indication: ANGINA PECTORIS
  2. REPATHA [Suspect]
     Active Substance: EVOLOCUMAB
     Indication: DYSPNOEA
  3. REPATHA [Suspect]
     Active Substance: EVOLOCUMAB
     Indication: HYPERLIPIDAEMIA
     Dosage: 140 MG, Q2WK
     Route: 058
     Dates: start: 20160128
  4. REPATHA [Suspect]
     Active Substance: EVOLOCUMAB
     Indication: ARTERIOSCLEROSIS

REACTIONS (1)
  - Dyspnoea [Unknown]
